FAERS Safety Report 9989398 (Version 1)
Quarter: 2014Q1

REPORT INFORMATION
  Report Type: Spontaneous
  Country: TR (occurrence: TR)
  Receive Date: 20140310
  Receipt Date: 20140310
  Transmission Date: 20141002
  Serious: Yes (Life-Threatening)
  Sender: FDA-Public Use
  Company Number: TR-JNJFOC-20140302756

PATIENT
  Age: 42 Year
  Sex: Female
  Weight: 98 kg

DRUGS (3)
  1. SIMPONI [Suspect]
     Indication: ANKYLOSING SPONDYLITIS
     Route: 058
     Dates: start: 20140205, end: 20140207
  2. SIMPONI [Suspect]
     Indication: ANKYLOSING SPONDYLITIS
     Route: 058
     Dates: start: 20140107, end: 20140205
  3. ENDOL [Concomitant]
     Dosage: FREQUENCY- 3X1
     Route: 048

REACTIONS (1)
  - Angioedema [Recovered/Resolved]
